FAERS Safety Report 5326695-6 (Version None)
Quarter: 2007Q2

REPORT INFORMATION
  Report Type: 
  Country: None (occurrence: None)
  Receive Date: 20070516
  Receipt Date: 20070508
  Transmission Date: 20071010
  Serious: Yes (Life-Threatening)
  Sender: FDA-Public Use
  Company Number: CN-SHR-CN-2007-016126

PATIENT
  Age: 54 Year
  Sex: Male

DRUGS (1)
  1. ULTRAVIST 370 [Suspect]
     Dosage: UNK, 1 DOSE
     Dates: start: 20070428, end: 20070428

REACTIONS (1)
  - ANAPHYLACTIC SHOCK [None]
